FAERS Safety Report 24360860 (Version 1)
Quarter: 2024Q3

REPORT INFORMATION
  Report Type: Spontaneous
  Country: US (occurrence: US)
  Receive Date: 20240925
  Receipt Date: 20240925
  Transmission Date: 20241017
  Serious: Yes (Other)
  Sender: AMGEN
  Company Number: US-AMGEN-USASP2024187929

PATIENT
  Age: 15 Year
  Sex: Female

DRUGS (4)
  1. INFLIXIMAB [Suspect]
     Active Substance: INFLIXIMAB
     Indication: Colitis ulcerative
     Dosage: 5 MILLIGRAM/KILOGRAM, Q4WK
     Route: 065
     Dates: start: 2020, end: 2020
  2. INFLIXIMAB [Suspect]
     Active Substance: INFLIXIMAB
     Dosage: 10 MILLIGRAM/KILOGRAM, Q4WK
     Route: 065
     Dates: start: 2020
  3. PREDNISONE [Suspect]
     Active Substance: PREDNISONE
     Indication: Colitis ulcerative
     Dosage: UNK
     Route: 065
     Dates: start: 2020
  4. MESALAMINE [Concomitant]
     Active Substance: MESALAMINE
     Indication: Colitis ulcerative
     Dosage: UNK
     Route: 065

REACTIONS (6)
  - Hypertransaminasaemia [Recovered/Resolved]
  - Colitis ulcerative [Unknown]
  - Breast swelling [Unknown]
  - Hidradenitis [Unknown]
  - Therapy change [Unknown]
  - Off label use [Unknown]

NARRATIVE: CASE EVENT DATE: 20200101
